FAERS Safety Report 8561506-7 (Version None)
Quarter: 2012Q3

REPORT INFORMATION
  Report Type: 
  Country: None (occurrence: None)
  Receive Date: 20120802
  Receipt Date: 20120729
  Transmission Date: 20120928
  Serious: Yes (Other)
  Sender: FDA-Public Use
  Company Number: US-INCYTE CORPORATION-2012IN000513

PATIENT
  Sex: Female
  Weight: 60.317 kg

DRUGS (9)
  1. JAKAFI [Suspect]
     Dosage: 15 MG AM, 5 MG PM, BID
     Route: 048
     Dates: start: 20120101, end: 20120601
  2. NIFEDIPINE [Concomitant]
     Dosage: UNK
  3. OMEPRAZOLE [Concomitant]
     Dosage: UNK
  4. NIFEDIPINE [Concomitant]
     Dosage: UNK
  5. LEVOTHYROXINE SODIUM [Concomitant]
     Dosage: UNK
  6. JAKAFI [Suspect]
     Indication: MYELOFIBROSIS
     Dosage: 15 MG, BID
     Route: 048
     Dates: start: 20120309, end: 20120101
  7. JAKAFI [Suspect]
     Dosage: 5 MG, BID
     Route: 048
     Dates: start: 20120601, end: 20120604
  8. SIMVASTATIN [Concomitant]
     Dosage: UNK
  9. DIOVAN HCT [Concomitant]
     Dosage: UNK

REACTIONS (3)
  - ABDOMINAL PAIN [None]
  - FATIGUE [None]
  - HEADACHE [None]
